FAERS Safety Report 19167577 (Version 1)
Quarter: 2021Q2

REPORT INFORMATION
  Report Type: Spontaneous
  Country: US (occurrence: US)
  Receive Date: 20210422
  Receipt Date: 20210422
  Transmission Date: 20210717
  Serious: No
  Sender: FDA-Public Use
  Company Number: US-ELI_LILLY_AND_COMPANY-US202103012166

PATIENT
  Age: 66 Year
  Sex: Male

DRUGS (5)
  1. TRULICITY [Suspect]
     Active Substance: DULAGLUTIDE
     Indication: GLUCOSE TOLERANCE IMPAIRED
     Dosage: 0.75 MG, WEEKLY (1/W)
     Route: 058
  2. METFORMIN [Concomitant]
     Active Substance: METFORMIN HYDROCHLORIDE
     Indication: WEIGHT DECREASED
     Dosage: 2 DOSAGE FORM, EACH EVENING
  3. METFORMIN [Concomitant]
     Active Substance: METFORMIN HYDROCHLORIDE
     Indication: BLOOD CHOLESTEROL INCREASED
  4. TRULICITY [Suspect]
     Active Substance: DULAGLUTIDE
     Indication: GLUCOSE TOLERANCE IMPAIRED
     Dosage: 0.75 MG, WEEKLY (1/W)
     Route: 058
  5. METFORMIN [Concomitant]
     Active Substance: METFORMIN HYDROCHLORIDE
     Indication: GLUCOSE TOLERANCE IMPAIRED
     Dosage: 2 DOSAGE FORM, EACH MORNING

REACTIONS (3)
  - Off label use [Unknown]
  - Blood glucose abnormal [Not Recovered/Not Resolved]
  - Product dose omission issue [Unknown]

NARRATIVE: CASE EVENT DATE: 20210311
